FAERS Safety Report 9520215 (Version 1)
Quarter: 2013Q3

REPORT INFORMATION
  Report Type: Spontaneous
  Country: US (occurrence: US)
  Receive Date: 20130912
  Receipt Date: 20130912
  Transmission Date: 20140515
  Serious: No
  Sender: FDA-Public Use
  Company Number: US-009507513-1309USA005382

PATIENT
  Sex: Female

DRUGS (2)
  1. TINACTIN CREAM [Suspect]
     Indication: PRURITUS
     Dosage: UNK, UNKNOWN
     Route: 061
  2. TINACTIN CREAM [Suspect]
     Indication: BURNING SENSATION

REACTIONS (2)
  - Condition aggravated [Unknown]
  - Drug ineffective [Unknown]
